FAERS Safety Report 23123910 (Version 5)
Quarter: 2024Q1

REPORT INFORMATION
  Report Type: Other
  Country: CN (occurrence: CN)
  Receive Date: 20231030
  Receipt Date: 20240205
  Transmission Date: 20240409
  Serious: Yes (Other)
  Sender: FDA-Public Use
  Company Number: CN-002147023-NVSC2023CN226999

PATIENT
  Age: 2 Month
  Sex: Male

DRUGS (9)
  1. LUCENTIS [Suspect]
     Active Substance: RANIBIZUMAB
     Indication: Retinopathy of prematurity
     Dosage: 0.2 MG (IN BOTH EYES)
     Route: 050
     Dates: start: 20230505, end: 20230505
  2. LEVOFLOXACIN [Concomitant]
     Active Substance: LEVOFLOXACIN
     Indication: Inflammation
     Dosage: 20 DROP (RINSE IN BOTH EYES)
     Route: 047
     Dates: start: 20230505, end: 20230505
  3. LEVOFLOXACIN [Concomitant]
     Active Substance: LEVOFLOXACIN
     Indication: Infection
  4. TOBRAMYCIN [Concomitant]
     Active Substance: TOBRAMYCIN
     Indication: Inflammation
     Dosage: 1 DROP
     Dates: start: 20230505, end: 202305
  5. TOBRAMYCIN [Concomitant]
     Active Substance: TOBRAMYCIN
     Indication: Infection
     Dosage: 1 DROP
     Dates: start: 20230615, end: 20230617
  6. TOBRAMYCIN [Concomitant]
     Active Substance: TOBRAMYCIN
     Dosage: 1 DROP
     Dates: start: 20230706, end: 20230708
  7. CARBOMER [Concomitant]
     Active Substance: CARBOMER
     Indication: Fundoscopy
     Dosage: 1 DRP
     Dates: start: 20230511, end: 20230511
  8. CARBOMER [Concomitant]
     Active Substance: CARBOMER
     Dosage: ONE DROP
     Dates: start: 20230615, end: 20230615
  9. CARBOMER [Concomitant]
     Active Substance: CARBOMER
     Dosage: 1 DROP
     Dates: start: 20230706, end: 20230706

REACTIONS (2)
  - Eye haemorrhage [Recovered/Resolved]
  - Conjunctival haemorrhage [Recovered/Resolved]

NARRATIVE: CASE EVENT DATE: 20230505
